FAERS Safety Report 25424844 (Version 1)
Quarter: 2025Q2

REPORT INFORMATION
  Report Type: Other
  Country: GB (occurrence: GB)
  Receive Date: 20250611
  Receipt Date: 20250611
  Transmission Date: 20250716
  Serious: Yes (Other)
  Sender: GLENMARK
  Company Number: None

PATIENT
  Age: 73 Year
  Sex: Male
  Weight: 74 kg

DRUGS (2)
  1. DAPAGLIFLOZIN [Suspect]
     Active Substance: DAPAGLIFLOZIN
     Indication: Product used for unknown indication
     Route: 065
     Dates: start: 2018, end: 20250102
  2. DAPAGLIFLOZIN [Suspect]
     Active Substance: DAPAGLIFLOZIN
     Indication: Product used for unknown indication
     Route: 065
     Dates: end: 20250101

REACTIONS (1)
  - Micturition urgency [Not Recovered/Not Resolved]

NARRATIVE: CASE EVENT DATE: 20240607
